FAERS Safety Report 4438667-4 (Version None)
Quarter: 2004Q3

REPORT INFORMATION
  Report Type: 
  Country: None (occurrence: None)
  Receive Date: 20040827
  Receipt Date: 20040614
  Transmission Date: 20050211
  Serious: Yes (Other)
  Sender: FDA-Public Use
  Company Number: 2004UW16778

PATIENT
  Age: 70 Year
  Sex: Female

DRUGS (4)
  1. ATACAND [Suspect]
     Indication: HYPERTENSION
     Dosage: 16 MG QD PO
     Route: 048
     Dates: start: 20040518, end: 20040520
  2. ALTACE [Suspect]
  3. TEMAZEPAM [Concomitant]
  4. SYNTHROID [Concomitant]

REACTIONS (8)
  - ACTIVITIES OF DAILY LIVING IMPAIRED [None]
  - BACK PAIN [None]
  - BURNING SENSATION [None]
  - FORMICATION [None]
  - HYPOAESTHESIA [None]
  - HYPOTENSION [None]
  - NEUROPATHIC PAIN [None]
  - PARAESTHESIA [None]
